FAERS Safety Report 10018342 (Version 1)
Quarter: 2014Q1

REPORT INFORMATION
  Report Type: Spontaneous
  Country: US (occurrence: None)
  Receive Date: 20140318
  Receipt Date: 20140318
  Transmission Date: 20141002
  Serious: Yes (Other)
  Sender: FDA-Public Use
  Company Number: None

PATIENT
  Age: 48 Year
  Sex: Male
  Weight: 106 kg

DRUGS (13)
  1. TACROLIMUS [Suspect]
     Route: 048
  2. FLOMAX [Suspect]
     Route: 048
  3. ERGOCALCIFEROL (VITAMIN D2) (VITAMIN D ORAL) [Concomitant]
  4. HYDROCODONE-ACETAMINOPHEN [Concomitant]
  5. LOPERAMIDE [Concomitant]
  6. LOSARTAN (COZAAR) [Concomitant]
  7. METOPROLOL TARTRATE (LOPRESSOR) [Concomitant]
  8. MYCOPHENOLATE MOFETIL (CELLCEPT) [Concomitant]
  9. PREDNISONE [Concomitant]
  10. ROPINIROLE (REQUIP) [Concomitant]
  11. SILDENAFIL (VIAGRA) [Concomitant]
  12. SIMVASTATIN (ZOCOR) [Concomitant]
  13. TACROLIMUS (PROGRAF) [Concomitant]

REACTIONS (5)
  - Drug dispensing error [None]
  - Wrong drug administered [None]
  - Product label on wrong product [None]
  - Renal failure chronic [None]
  - Kidney transplant rejection [None]
